FAERS Safety Report 7408257-X (Version None)
Quarter: 2011Q2

REPORT INFORMATION
  Report Type: 
  Country: None (occurrence: None)
  Receive Date: 20110412
  Receipt Date: 20110104
  Transmission Date: 20111010
  Serious: No
  Sender: FDA-Public Use
  Company Number: A0897675A

PATIENT
  Age: 69 Year
  Sex: Male
  Weight: 83.2 kg

DRUGS (7)
  1. TARCEVA [Suspect]
     Dosage: 150MG PER DAY
     Route: 048
  2. COUMADIN [Suspect]
     Dosage: 6MG PER DAY
     Route: 048
  3. JALYN [Suspect]
     Indication: BENIGN PROSTATIC HYPERPLASIA
     Dosage: 1CAP PER DAY
     Route: 048
  4. ALBUTEROL [Concomitant]
     Route: 055
  5. SPIRIVA [Concomitant]
  6. LOVENOX [Suspect]
     Dosage: 80MG PER DAY
     Route: 042
  7. ADVAIR HFA [Concomitant]
     Route: 055

REACTIONS (2)
  - BLOOD URINE PRESENT [None]
  - DRUG INTERACTION [None]
